FAERS Safety Report 5794275-4 (Version None)
Quarter: 2008Q2

REPORT INFORMATION
  Report Type: 
  Country: None (occurrence: None)
  Receive Date: 20080627
  Receipt Date: 20080616
  Transmission Date: 20081010
  Serious: Yes (Other)
  Sender: FDA-Public Use
  Company Number: US-PFIZER INC-2008051837

PATIENT
  Sex: Female
  Weight: 117.9 kg

DRUGS (12)
  1. LYRICA [Suspect]
     Indication: FIBROMYALGIA
  2. MONTELUKAST SODIUM [Concomitant]
  3. DURAGESIC-100 [Concomitant]
  4. NEXIUM [Concomitant]
  5. FOLIC ACID [Concomitant]
  6. CLARINEX [Concomitant]
  7. CELEBREX [Concomitant]
  8. GLUCOSAMINE SULFATE [Concomitant]
  9. CYMBALTA [Concomitant]
  10. OCEAN [Concomitant]
  11. GENTEAL [Concomitant]
  12. ALL OTHER THERAPEUTIC PRODUCTS [Concomitant]

REACTIONS (4)
  - ANAPHYLACTIC SHOCK [None]
  - DYSPNOEA [None]
  - LIP SWELLING [None]
  - SWOLLEN TONGUE [None]
